FAERS Safety Report 16978251 (Version 1)
Quarter: 2019Q4

REPORT INFORMATION
  Report Type: Spontaneous
  Country: US (occurrence: US)
  Receive Date: 20191031
  Receipt Date: 20191031
  Transmission Date: 20200122
  Serious: Yes (Hospitalization)
  Sender: FDA-Public Use
  Company Number: US-ELI_LILLY_AND_COMPANY-US201910010198

PATIENT
  Sex: Male

DRUGS (1)
  1. TRULICITY [Suspect]
     Active Substance: DULAGLUTIDE
     Indication: PRODUCT USED FOR UNKNOWN INDICATION
     Dosage: 1.5 MG, UNKNOWN
     Route: 058
     Dates: start: 2015

REACTIONS (3)
  - Product dose omission [Unknown]
  - Squamous cell carcinoma of the oral cavity [Recovering/Resolving]
  - Laryngeal squamous cell carcinoma [Recovering/Resolving]

NARRATIVE: CASE EVENT DATE: 20191017
